FAERS Safety Report 7645841-2 (Version None)
Quarter: 2011Q3

REPORT INFORMATION
  Report Type: 
  Country: None (occurrence: None)
  Receive Date: 20110729
  Receipt Date: 20110718
  Transmission Date: 20111222
  Serious: Yes (Hospitalization, Other)
  Sender: FDA-Public Use
  Company Number: PHHY2011BR65443

PATIENT
  Sex: Female

DRUGS (7)
  1. FRISIUM [Concomitant]
     Dosage: 1 DF, DAILY
  2. TEGRETOL [Suspect]
     Indication: EPILEPSY
     Dosage: 2 DF, DAILY
     Route: 048
  3. TEGRETOL-XR [Suspect]
     Dosage: 4 DF, DAILY
  4. DEPAKOTE [Concomitant]
     Dosage: 1 DF, DAILY
  5. TEGRETOL [Suspect]
     Dosage: 8 DF, DAILY
     Route: 048
  6. PHENOBARBITAL TAB [Concomitant]
     Dosage: 2 DF, DAILY
  7. MATERNA [Concomitant]
     Dosage: 1 DF, DAILY

REACTIONS (9)
  - PREMATURE LABOUR [None]
  - TOXICITY TO VARIOUS AGENTS [None]
  - AGITATION [None]
  - CONVULSION [None]
  - VARICOSE VEIN [None]
  - LABYRINTHITIS [None]
  - GLAUCOMA [None]
  - LOOSE TOOTH [None]
  - MATERNAL EXPOSURE DURING PREGNANCY [None]
